FAERS Safety Report 19854572 (Version 3)
Quarter: 2022Q3

REPORT INFORMATION
  Report Type: Report from Study
  Country: US (occurrence: US)
  Receive Date: 20210920
  Receipt Date: 20220818
  Transmission Date: 20221027
  Serious: No
  Sender: FDA-Public Use
  Company Number: US-MIC-A0P5B00000SMXH7EAH

PATIENT
  Sex: Female
  Weight: 48 kg

DRUGS (1)
  1. BRIGATINIB [Suspect]
     Active Substance: BRIGATINIB
     Indication: Lung neoplasm malignant
     Dosage: 60 MILLIGRAM, QD
     Route: 065

REACTIONS (4)
  - Blood cholesterol increased [Unknown]
  - Hypoacusis [Unknown]
  - Product dose omission issue [Unknown]
  - Product distribution issue [Unknown]
